FAERS Safety Report 5071938-X (Version None)
Quarter: 2006Q3

REPORT INFORMATION
  Report Type: 
  Country: None (occurrence: None)
  Receive Date: 20060804
  Receipt Date: 20060725
  Transmission Date: 20061208
  Serious: Yes (Hospitalization)
  Sender: FDA-Public Use
  Company Number: DE-ABBOTT-06P-062-0339045-00

PATIENT
  Sex: Female

DRUGS (1)
  1. HUMIRA [Suspect]
     Indication: RHEUMATOID ARTHRITIS
     Route: 058
     Dates: start: 20041101, end: 20060501

REACTIONS (5)
  - AMNESIA [None]
  - ANTINUCLEAR ANTIBODY POSITIVE [None]
  - DIZZINESS [None]
  - HEADACHE [None]
  - MENINGITIS [None]
